FAERS Safety Report 6807789-2 (Version None)
Quarter: 2010Q2

REPORT INFORMATION
  Report Type: 
  Country: None (occurrence: None)
  Receive Date: 20100629
  Receipt Date: 20081209
  Transmission Date: 20101027
  Serious: No
  Sender: FDA-Public Use
  Company Number: US-PFIZER INC-2008155654

PATIENT
  Sex: Male
  Weight: 74.8 kg

DRUGS (2)
  1. VIAGRA [Suspect]
     Indication: OFF LABEL USE
     Dosage: 50 MG, AS NEEDED
     Route: 048
     Dates: start: 20040101, end: 20040101
  2. VIAGRA [Suspect]
     Indication: PROSTATE CANCER

REACTIONS (1)
  - HEADACHE [None]
